FAERS Safety Report 6863851 (Version 4)
Quarter: 2012Q4

REPORT INFORMATION
  Report Type: 
  Country: US (occurrence: US)
  Receive Date: 20081222
  Receipt Date: 20121213
  Transmission Date: 20130627
  Serious: Yes (Death, Other)
  Sender: FDA-Public Use
  Company Number: US-BAYER-200841074NA

PATIENT
  Age: 60 Year
  Sex: Male
  Weight: 93.88 kg

DRUGS (30)
  1. TRASYLOL [Suspect]
     Indication: STERNOTOMY
     Dosage: Test dose: 1mL
     Route: 042
     Dates: start: 20061208, end: 20061208
  2. TRASYLOL [Suspect]
     Indication: CORONARY ARTERY BYPASS GRAFT
     Dosage: Loading dose: 200mL bolus then 50mL/hr
  3. ACETYLSALICYLIC ACID (} 100 MG) [Concomitant]
     Dosage: One per day
  4. PACKED RED BLOOD CELLS [Concomitant]
  5. PLASMA [Concomitant]
  6. PRINIVIL [Concomitant]
     Indication: HYPERTENSION
     Dosage: 20 mg, QD
     Route: 048
  7. LANOXIN [Concomitant]
     Dosage: 0.125 mg, QD
     Route: 048
  8. ZETIA [Concomitant]
     Dosage: 10 mg, QD
     Route: 048
  9. NITROGLYCERIN [Concomitant]
     Indication: CHEST PAIN
     Dosage: 0.4 mg, PRN
     Route: 048
  10. NITROGLYCERIN [Concomitant]
     Indication: CHEST PAIN
     Dosage: 50/250mL
     Route: 042
     Dates: start: 20061208
  11. PROTONIX [Concomitant]
     Dosage: 40mg
     Route: 048
  12. FUROSEMIDE [Concomitant]
     Dosage: 20mg
     Route: 048
  13. AMITRIPTYLINE [Concomitant]
     Dosage: 25mg
     Route: 048
  14. LISINOPRIL [Concomitant]
     Dosage: 30mg
     Route: 048
  15. TOPROL XL [Concomitant]
     Dosage: 50 mg, QD
     Route: 048
  16. LASIX [Concomitant]
     Indication: DIURETIC THERAPY
     Dosage: 20 mg, QD
     Route: 048
  17. NAPROXEN [Concomitant]
     Indication: KNEE ARTHRITIS
     Dosage: UNK
     Route: 048
     Dates: start: 1998
  18. CELESTONE [Concomitant]
     Indication: OSTEOARTHRITIS
     Dosage: UNK
     Dates: start: 20050509
  19. ADVIL [Concomitant]
     Route: 048
  20. VERSED [Concomitant]
     Dosage: UNK
     Route: 042
     Dates: start: 20061208
  21. FENTANYL [Concomitant]
     Dosage: UNK
     Route: 042
     Dates: start: 20061208
  22. LIDOCAINE [Concomitant]
     Dosage: UNK
     Route: 042
     Dates: start: 20061208
  23. SUCCINYLCHOLINE CHLORIDE [Concomitant]
     Dosage: UNK
     Route: 042
     Dates: start: 20061208
  24. PAVULON [Concomitant]
     Dosage: UNK
     Route: 042
     Dates: start: 20061208
  25. LEVOPHED [Concomitant]
     Dosage: 4/250
     Route: 042
     Dates: start: 20061208
  26. DOBUTREX [Concomitant]
     Dosage: 500/250
     Route: 042
     Dates: start: 20061208
  27. ANCEF [Concomitant]
     Dosage: 2gm
     Route: 042
     Dates: start: 20061208
  28. HEPARIN [Concomitant]
     Dosage: UNK
     Route: 042
     Dates: start: 20061208
  29. POTASSIUM CHLORIDE [Concomitant]
     Dosage: 40meq
     Route: 042
     Dates: start: 20061208
  30. BUMEX [Concomitant]

REACTIONS (13)
  - Death [Fatal]
  - Multi-organ failure [Unknown]
  - Renal failure [Unknown]
  - Emotional distress [Unknown]
  - Stress [Unknown]
  - Anxiety [Unknown]
  - Unevaluable event [Unknown]
  - Fear [Unknown]
  - Pain [Unknown]
  - Unevaluable event [Unknown]
  - Anhedonia [Unknown]
  - Anxiety [Unknown]
  - Injury [Unknown]
